FAERS Safety Report 4944375-3 (Version None)
Quarter: 2006Q1

REPORT INFORMATION
  Report Type: 
  Country: None (occurrence: None)
  Receive Date: 20060315
  Receipt Date: 20051114
  Transmission Date: 20060701
  Serious: Yes (Hospitalization, Disabling, Other)
  Sender: FDA-Public Use
  Company Number: US-MERCK-0511USA02809

PATIENT
  Age: 53 Year
  Sex: Female
  Weight: 143 kg

DRUGS (7)
  1. VIOXX [Suspect]
     Indication: MENISCUS LESION
     Route: 048
     Dates: start: 20000101, end: 20030101
  2. VIOXX [Suspect]
     Route: 048
     Dates: start: 20000201, end: 20000801
  3. VIOXX [Suspect]
     Route: 048
     Dates: start: 20000827, end: 20000831
  4. VIOXX [Suspect]
     Indication: KNEE OPERATION
     Route: 048
     Dates: start: 20000101, end: 20030101
  5. VIOXX [Suspect]
     Route: 048
     Dates: start: 20000201, end: 20000801
  6. VIOXX [Suspect]
     Route: 048
     Dates: start: 20000827, end: 20000831
  7. TYLENOL W/ CODEINE NO. 3 [Concomitant]
     Route: 065

REACTIONS (27)
  - ANGINA UNSTABLE [None]
  - ANXIETY [None]
  - CAROTID ARTERY DISEASE [None]
  - CARPAL TUNNEL SYNDROME [None]
  - CEREBROVASCULAR ACCIDENT [None]
  - CHEST PAIN [None]
  - CONVULSION [None]
  - CORONARY ARTERY DISEASE [None]
  - CORONARY ARTERY INSUFFICIENCY [None]
  - CORONARY ARTERY OCCLUSION [None]
  - COUGH [None]
  - DEPRESSION [None]
  - DIABETES MELLITUS [None]
  - DIABETIC NEUROPATHY [None]
  - DYSPNOEA [None]
  - EPICONDYLITIS [None]
  - EXTRASYSTOLES [None]
  - HYPOAESTHESIA [None]
  - INJURY [None]
  - MYOCARDIAL ISCHAEMIA [None]
  - NAUSEA [None]
  - OEDEMA PERIPHERAL [None]
  - OVERDOSE [None]
  - PAIN IN EXTREMITY [None]
  - SINUS TACHYCARDIA [None]
  - THROMBOSIS [None]
  - VOMITING [None]
